FAERS Safety Report 9013050 (Version 2)
Quarter: 2013Q4

REPORT INFORMATION
  Report Type: Spontaneous
  Country: GB (occurrence: GB)
  Receive Date: 20130114
  Receipt Date: 20131008
  Transmission Date: 20140711
  Serious: Yes (Other)
  Sender: FDA-Public Use
  Company Number: GB-TEVA-379562ISR

PATIENT
  Age: 57 Year
  Sex: Female
  Weight: 80 kg

DRUGS (4)
  1. ATENOLOL [Suspect]
     Indication: HYPERTENSION
     Dosage: 50 MILLIGRAM DAILY;
     Route: 048
     Dates: start: 2002, end: 20120921
  2. CETIRIZINE [Concomitant]
     Indication: SEASONAL ALLERGY
     Dosage: 10 MILLIGRAM DAILY; CONTINUING
     Route: 048
     Dates: start: 20110202
  3. SENNA [Concomitant]
     Indication: CONSTIPATION
     Dosage: 15 MILLIGRAM DAILY; 2 AT NIGHT AS REQUIRED. CONTINUING.
     Route: 048
     Dates: start: 2011
  4. BENDROFLUMETHIAZIDE [Concomitant]
     Indication: HYPERTENSION
     Dosage: 2.5 MILLIGRAM DAILY; STOPPED.
     Route: 048
     Dates: start: 2002, end: 20120928

REACTIONS (1)
  - Cough [Recovered/Resolved]
